FAERS Safety Report 7751524-0 (Version None)
Quarter: 2011Q3

REPORT INFORMATION
  Report Type: 
  Country: None (occurrence: None)
  Receive Date: 20110914
  Receipt Date: 20110907
  Transmission Date: 20111222
  Serious: Yes (Other)
  Sender: FDA-Public Use
  Company Number: PHHY2011US61990

PATIENT
  Sex: Female
  Weight: 45.805 kg

DRUGS (14)
  1. ALBUTEROL [Concomitant]
     Indication: CYSTIC FIBROSIS
  2. AZITHROMYCIN [Concomitant]
     Indication: CYSTIC FIBROSIS
  3. PULMOZYME [Concomitant]
     Indication: CYSTIC FIBROSIS
  4. CALCIUM CARBONATE [Concomitant]
     Indication: CYSTIC FIBROSIS
     Dosage: UNK
     Route: 048
  5. VITAMIN TAB [Concomitant]
     Indication: CYSTIC FIBROSIS
     Dosage: UNK
     Route: 048
  6. ADVAIR DISKUS 100/50 [Concomitant]
     Indication: CYSTIC FIBROSIS
     Dosage: UNK
  7. LANTUS [Concomitant]
     Indication: DIABETES MELLITUS
  8. NOVOLOG [Concomitant]
     Indication: DIABETES MELLITUS
  9. HYPOTONIC SALINE [Concomitant]
     Indication: CYSTIC FIBROSIS
     Dosage: UNK
  10. SINGULAIR [Concomitant]
     Indication: CYSTIC FIBROSIS
     Route: 048
  11. ITRACONAZOLE [Concomitant]
     Indication: BRONCHOPULMONARY ASPERGILLOSIS ALLERGIC
     Dosage: UNK
     Route: 048
  12. ZENPEP [Concomitant]
     Indication: CYSTIC FIBROSIS
     Route: 048
  13. CAYSTON [Concomitant]
     Indication: CYSTIC FIBROSIS
  14. TOBI [Suspect]
     Indication: CYSTIC FIBROSIS
     Dosage: 300 MG, BID VIA NEBULIZER IN A CYCLE OF 28 DAYS ON AND 28 DAYS OFF
     Dates: start: 20100412

REACTIONS (1)
  - INFECTIVE PULMONARY EXACERBATION OF CYSTIC FIBROSIS [None]
